FAERS Safety Report 8439779-0 (Version None)
Quarter: 2012Q2

REPORT INFORMATION
  Report Type: 
  Country: None (occurrence: None)
  Receive Date: 20120608
  Receipt Date: 20120524
  Transmission Date: 20120825
  Serious: Yes (Hospitalization)
  Sender: FDA-Public Use
  Company Number: INT_00074_2012

PATIENT
  Age: 74 Year
  Sex: Female

DRUGS (6)
  1. PHENYTOIN [Concomitant]
  2. AMPICILLIN AND SULBACTAM [Suspect]
     Indication: PNEUMONIA
     Dosage: (UNKNOWN DF)
  3. TOPIRAMATE [Concomitant]
  4. VANCOMYCIN [Concomitant]
  5. CEFTRIAXONE [Concomitant]
  6. LEVETIRACETAM [Concomitant]

REACTIONS (10)
  - CEREBRAL HAEMORRHAGE [None]
  - MENINGITIS PNEUMOCOCCAL [None]
  - MYOCARDIAL INFARCTION [None]
  - NERVOUS SYSTEM DISORDER [None]
  - RASH MACULO-PAPULAR [None]
  - BLISTER [None]
  - SEPTIC SHOCK [None]
  - PNEUMONIA [None]
  - STATUS EPILEPTICUS [None]
  - VASCULITIS [None]
